FAERS Safety Report 19193603 (Version 1)
Quarter: 2021Q2

REPORT INFORMATION
  Report Type: Spontaneous
  Country: US (occurrence: US)
  Receive Date: 20210429
  Receipt Date: 20210429
  Transmission Date: 20210717
  Serious: No
  Sender: FDA-Public Use
  Company Number: US-GLAXOSMITHKLINE-US2021090824

PATIENT
  Sex: Female
  Weight: 50.3 kg

DRUGS (1)
  1. BREO ELLIPTA [Suspect]
     Active Substance: FLUTICASONE FUROATE\VILANTEROL TRIFENATATE
     Indication: PRODUCT USED FOR UNKNOWN INDICATION
     Dosage: 1 PUFF(S), QD,200/25
     Route: 055
     Dates: start: 202012

REACTIONS (4)
  - Dyspnoea [Unknown]
  - Cardiac disorder [Unknown]
  - Blood pressure abnormal [Unknown]
  - Drug ineffective [Unknown]
